FAERS Safety Report 24859863 (Version 2)
Quarter: 2025Q1

REPORT INFORMATION
  Report Type: Spontaneous
  Country: JP (occurrence: JP)
  Receive Date: 20250119
  Receipt Date: 20250225
  Transmission Date: 20250409
  Serious: Yes (Death, Hospitalization, Other)
  Sender: NOVARTIS
  Company Number: JP-002147023-NVSJ2025JP001036

PATIENT
  Age: 62 Year
  Sex: Male

DRUGS (7)
  1. ENTRESTO [Suspect]
     Active Substance: SACUBITRIL\VALSARTAN
     Indication: Cardiac failure chronic
     Dosage: 100 MG, BID
     Route: 048
  2. SAMSCA [Suspect]
     Active Substance: TOLVAPTAN
     Indication: Product used for unknown indication
     Route: 048
  3. BISOPROLOL [Suspect]
     Active Substance: BISOPROLOL
     Indication: Product used for unknown indication
     Route: 048
  4. DAPAGLIFLOZIN [Suspect]
     Active Substance: DAPAGLIFLOZIN
     Indication: Product used for unknown indication
     Route: 048
  5. EPLERENONE [Suspect]
     Active Substance: EPLERENONE
     Indication: Product used for unknown indication
     Route: 048
  6. FUROSEMIDE [Suspect]
     Active Substance: FUROSEMIDE
     Indication: Product used for unknown indication
     Route: 048
  7. TRESIBA [Suspect]
     Active Substance: INSULIN DEGLUDEC
     Indication: Product used for unknown indication
     Route: 058

REACTIONS (20)
  - Sepsis [Fatal]
  - Pyrexia [Fatal]
  - Sputum purulent [Fatal]
  - Tachypnoea [Fatal]
  - Hypoxia [Fatal]
  - Blood pressure decreased [Fatal]
  - Cardio-respiratory arrest [Fatal]
  - Endocarditis [Fatal]
  - C-reactive protein increased [Fatal]
  - Renal impairment [Fatal]
  - Fluid retention [Fatal]
  - Malaise [Fatal]
  - Blood creatinine increased [Fatal]
  - Pneumonia [Fatal]
  - Cardiac failure [Unknown]
  - Wheezing [Unknown]
  - Hypophagia [Unknown]
  - Dehydration [Unknown]
  - SARS-CoV-2 test positive [Unknown]
  - Dyspnoea [Recovering/Resolving]

NARRATIVE: CASE EVENT DATE: 20241220
